FAERS Safety Report 17534252 (Version 1)
Quarter: 2020Q1

REPORT INFORMATION
  Report Type: Spontaneous
  Country: GB (occurrence: GB)
  Receive Date: 20200312
  Receipt Date: 20200312
  Transmission Date: 20200409
  Serious: Yes (Other)
  Sender: FDA-Public Use
  Company Number: GB-INDIVIOR LIMITED-INDV-123931-2020

PATIENT
  Sex: Male

DRUGS (4)
  1. ESPRANOR [Suspect]
     Active Substance: BUPRENORPHINE HYDROCHLORIDE
     Dosage: 12 MILLIGRAM, QD
     Route: 065
     Dates: start: 2019, end: 2019
  2. SUBUTEX [Suspect]
     Active Substance: BUPRENORPHINE HYDROCHLORIDE
     Indication: DRUG DEPENDENCE
     Dosage: UNK
     Route: 065
     Dates: end: 2019
  3. ESPRANOR [Suspect]
     Active Substance: BUPRENORPHINE HYDROCHLORIDE
     Dosage: 14 MILLIGRAM, QD
     Route: 065
     Dates: start: 2019
  4. ESPRANOR [Suspect]
     Active Substance: BUPRENORPHINE HYDROCHLORIDE
     Indication: DRUG DEPENDENCE
     Dosage: 8 MILLIGRAM, QD
     Route: 065
     Dates: start: 201911, end: 2019

REACTIONS (8)
  - Lethargy [Not Recovered/Not Resolved]
  - Loss of consciousness [Not Recovered/Not Resolved]
  - Product taste abnormal [Not Recovered/Not Resolved]
  - Tremor [Unknown]
  - Visual impairment [Not Recovered/Not Resolved]
  - Somnolence [Not Recovered/Not Resolved]
  - Derealisation [Unknown]
  - Hot flush [Not Recovered/Not Resolved]

NARRATIVE: CASE EVENT DATE: 2019
